FAERS Safety Report 8899620 (Version 1)
Quarter: 2012Q4

REPORT INFORMATION
  Report Type: 
  Country: US (occurrence: US)
  Receive Date: 20121109
  Receipt Date: 20121109
  Transmission Date: 20130627
  Serious: Yes (Death, Hospitalization)
  Sender: FDA-Public Use
  Company Number: US-COVIDIEN/TYCO HEALTHCARE/MALLINCKRODT-T201203751

PATIENT
  Age: 50 Year
  Sex: Female
  Weight: 53.7 kg

DRUGS (17)
  1. ROXICODONE [Suspect]
     Indication: PAIN
     Dosage: 60 mg, Q 8 hours
     Route: 048
     Dates: start: 20120810
  2. DACOMITINIB [Suspect]
     Indication: NON-SMALL CELL LUNG CANCER
     Dosage: 45 mg, 1x/day
     Route: 048
     Dates: start: 20120726, end: 20120922
  3. DOXYCYCLINE [Suspect]
  4. PLACEBO [Suspect]
     Indication: NON-SMALL CELL LUNG CANCER
     Dosage: 200 mg, 2x/day
     Route: 048
     Dates: start: 20120726, end: 20120822
  5. PRAZOSIN HCL [Suspect]
     Indication: HYPERTENSION
     Dosage: 1 mg, qd
     Route: 048
     Dates: start: 20120810
  6. MORPHINE SULFATE [Suspect]
     Indication: PAIN
     Dosage: 30 mg, q12h
     Route: 048
     Dates: start: 20120327
  7. CYMBALTA [Suspect]
     Indication: BIPOLAR DISORDER
     Dosage: 120 mg, qd
     Route: 048
     Dates: start: 20120327
  8. WELLBUTRIN [Suspect]
     Indication: BIPOLAR DISORDER
     Dosage: 300 mg, qd
     Route: 048
     Dates: start: 20120327
  9. ZYPREXA [Suspect]
     Indication: BIPOLAR DISORDER
     Dosage: 7.5 20 mg daily
     Route: 048
     Dates: start: 20120327
  10. TOPAMAX [Suspect]
     Indication: BIPOLAR DISORDER
     Dosage: 50 mg, qd
     Route: 048
     Dates: start: 20120329
  11. CLONAZEPAM [Suspect]
     Indication: BIPOLAR DISORDER
     Dosage: 0.5 mg, qd
     Route: 048
     Dates: start: 20120327
  12. PERCOCET /00867901/ [Suspect]
     Indication: BIPOLAR DISORDER
     Dosage: 5/325 mg Q6 hours
     Route: 048
     Dates: start: 20120327
  13. OXYCONTIN [Suspect]
     Indication: PAIN
     Dosage: 10 mg, q 6 hours
     Route: 048
     Dates: start: 20120810
  14. VITAMIN B12                        /00056201/ [Concomitant]
     Indication: PROPHYLAXIS
     Dosage: UNK
  15. CITRACAL                           /00751520/ [Concomitant]
     Indication: PROPHYLAXIS
     Dosage: UNK
  16. IRON [Concomitant]
     Dosage: UNK
  17. FOLIC ACID [Concomitant]
     Indication: PROPHYLAXIS
     Dosage: UNK

REACTIONS (4)
  - Gastrointestinal haemorrhage [Fatal]
  - Hypovolaemic shock [Fatal]
  - Cardio-respiratory arrest [Fatal]
  - Small intestinal obstruction [None]
